FAERS Safety Report 25117337 (Version 1)
Quarter: 2025Q1

REPORT INFORMATION
  Report Type: Spontaneous
  Country: DE (occurrence: DE)
  Receive Date: 20250325
  Receipt Date: 20250325
  Transmission Date: 20250409
  Serious: Yes (Congenital Anomaly, Other)
  Sender: AUROBINDO
  Company Number: DE-EMB-M202303757-1

PATIENT
  Sex: Female
  Weight: 1.1 kg

DRUGS (8)
  1. NEBIVOLOL [Suspect]
     Active Substance: NEBIVOLOL
     Indication: Atrial septal defect
     Route: 064
     Dates: start: 202303, end: 202311
  2. NEBIVOLOL [Suspect]
     Active Substance: NEBIVOLOL
     Indication: Mitral valve incompetence
  3. NEBIVOLOL [Suspect]
     Active Substance: NEBIVOLOL
     Indication: Tachycardia
  4. FOLLITROPIN ALFA [Concomitant]
     Active Substance: FOLLITROPIN ALFA
     Indication: Assisted fertilisation
     Dosage: 225 INTERNATIONAL UNIT, ONCE A DAY
     Route: 064
     Dates: start: 202303
  5. CHORIOGONADOTROPIN ALFA [Concomitant]
     Active Substance: CHORIOGONADOTROPIN ALFA
     Indication: Assisted fertilisation
     Route: 064
     Dates: start: 202304
  6. ATOSIBAN [Concomitant]
     Active Substance: ATOSIBAN
     Indication: Cervical incompetence
     Route: 064
     Dates: start: 202310
  7. GANIRELIX [Concomitant]
     Active Substance: GANIRELIX
     Indication: Assisted fertilisation
     Dosage: 0.25 MILLIGRAM, ONCE A DAY
     Route: 064
     Dates: start: 202303
  8. BUDESONIDE [Concomitant]
     Active Substance: BUDESONIDE
     Indication: Asthma
     Route: 064
     Dates: start: 202303

REACTIONS (3)
  - Fallot^s tetralogy [Not Recovered/Not Resolved]
  - Small for dates baby [Unknown]
  - Foetal exposure during pregnancy [Unknown]

NARRATIVE: CASE EVENT DATE: 20231101
